FAERS Safety Report 20171844 (Version 1)
Quarter: 2021Q4

REPORT INFORMATION
  Report Type: Other
  Country: DE (occurrence: DE)
  Receive Date: 20211210
  Receipt Date: 20211210
  Transmission Date: 20220304
  Serious: Yes (Other)
  Sender: FDA-Public Use
  Company Number: None

PATIENT
  Age: 36 Year
  Sex: Female
  Weight: 61 kg

DRUGS (4)
  1. DROSPIRENONE [Interacting]
     Active Substance: DROSPIRENONE
     Indication: Heavy menstrual bleeding
     Dosage: 4MG, 1X TAG
     Route: 048
     Dates: start: 20210625
  2. LAMOTRIGINE [Interacting]
     Active Substance: LAMOTRIGINE
     Indication: Juvenile myoclonic epilepsy
     Dosage: 1-0-0
  3. LEVOTHYROXINE [Concomitant]
     Active Substance: LEVOTHYROXINE
     Dosage: 75 ?G
  4. LEVETIRACETAM [Interacting]
     Active Substance: LEVETIRACETAM
     Indication: Juvenile myoclonic epilepsy
     Dosage: 500-500-250MG

REACTIONS (12)
  - Epilepsy [Unknown]
  - Petit mal epilepsy [Not Recovered/Not Resolved]
  - Abdominal distension [Not Recovered/Not Resolved]
  - Impaired work ability [Unknown]
  - Nausea [Not Recovered/Not Resolved]
  - Micturition urgency [Not Recovered/Not Resolved]
  - Drug interaction [Unknown]
  - Arthralgia [Not Recovered/Not Resolved]
  - Abdominal pain lower [Not Recovered/Not Resolved]
  - General physical health deterioration [Unknown]
  - Irritability [Recovered/Resolved]
  - Depressed mood [Not Recovered/Not Resolved]

NARRATIVE: CASE EVENT DATE: 20210601
